FAERS Safety Report 13855233 (Version 1)
Quarter: 2017Q3

REPORT INFORMATION
  Report Type: Spontaneous
  Country: US (occurrence: US)
  Receive Date: 20170810
  Receipt Date: 20170810
  Transmission Date: 20171127
  Serious: No
  Sender: FDA-Public Use
  Company Number: US-BAYER-2017-145143

PATIENT
  Age: 70 Year
  Sex: Male

DRUGS (1)
  1. CIPRO [Suspect]
     Active Substance: CIPROFLOXACIN HYDROCHLORIDE
     Indication: PRODUCT USED FOR UNKNOWN INDICATION
     Dosage: 2 DF, PER DAY
     Route: 048

REACTIONS (6)
  - Arthralgia [Unknown]
  - Dysstasia [None]
  - Bursitis [None]
  - Pain [None]
  - Gait disturbance [None]
  - Joint range of motion decreased [None]

NARRATIVE: CASE EVENT DATE: 20170712
